FAERS Safety Report 8911518 (Version 2)
Quarter: 2014Q2

REPORT INFORMATION
  Report Type: Spontaneous
  Country: US (occurrence: US)
  Receive Date: 20121115
  Receipt Date: 20131024
  Transmission Date: 20141212
  Serious: No
  Sender: FDA-Public Use
  Company Number: US-PFIZER INC-2012284323

PATIENT
  Age: 41 Year
  Sex: Male
  Weight: 72.56 kg

DRUGS (2)
  1. ADVIL COLD AND SINUS [Suspect]
     Indication: SINUS HEADACHE
     Dosage: UNK, ONCE A DAY
     Route: 048
     Dates: start: 201210
  2. ALLEGRA [Concomitant]
     Dosage: UNK, AS NEEDED

REACTIONS (1)
  - Dysphagia [Unknown]
